FAERS Safety Report 17224451 (Version 1)
Quarter: 2019Q4

REPORT INFORMATION
  Report Type: Spontaneous
  Country: US (occurrence: US)
  Receive Date: 20191209
  Receipt Date: 20191209
  Transmission Date: 20200122
  Serious: No
  Sender: FDA-Public Use
  Company Number: None

PATIENT
  Age: 44 Year
  Sex: Female

DRUGS (1)
  1. RANITIDINE. [Suspect]
     Active Substance: RANITIDINE
     Indication: GASTRIC DISORDER
     Dosage: ?          OTHER FREQUENCY:DAILY/TWICEASNEEDE;?
     Route: 048
     Dates: start: 20190812, end: 20190816

REACTIONS (6)
  - Blood urine present [None]
  - Nausea [None]
  - Chromaturia [None]
  - Recalled product administered [None]
  - Fatigue [None]
  - Malaise [None]
